FAERS Safety Report 21057245 (Version 1)
Quarter: 2022Q3

REPORT INFORMATION
  Report Type: Spontaneous
  Country: US (occurrence: US)
  Receive Date: 20220708
  Receipt Date: 20220708
  Transmission Date: 20221027
  Serious: No
  Sender: FDA-Public Use
  Company Number: US-BAUSCH-BL-2022-016899

PATIENT
  Age: 84 Year
  Sex: Male

DRUGS (1)
  1. LATANOPROST [Suspect]
     Active Substance: LATANOPROST
     Indication: Glaucoma
     Route: 047

REACTIONS (5)
  - Instillation site discomfort [Unknown]
  - Instillation site pain [Unknown]
  - Wrong technique in product usage process [Unknown]
  - Product packaging issue [Unknown]
  - Product quality issue [Unknown]
